FAERS Safety Report 9388988 (Version 1)
Quarter: 2013Q3

REPORT INFORMATION
  Report Type: Spontaneous
  Country: FR (occurrence: FR)
  Receive Date: 20130708
  Receipt Date: 20130708
  Transmission Date: 20140515
  Serious: Yes (Hospitalization, Other)
  Sender: FDA-Public Use
  Company Number: FR-ABBOTT-13P-056-1113597-00

PATIENT
  Age: 39 Year
  Sex: Female

DRUGS (9)
  1. NORVIR [Suspect]
     Indication: HIV INFECTION
     Dates: start: 20130516
  2. ADIAZINE [Suspect]
     Indication: TOXOPLASMOSIS
     Route: 048
     Dates: start: 20130504, end: 20130528
  3. PYRIMETHAMINE [Suspect]
     Indication: TOXOPLASMOSIS
     Route: 048
     Dates: start: 20130504, end: 20130517
  4. PYRIMETHAMINE [Suspect]
     Dates: start: 20130521, end: 20130528
  5. TRUVADA [Suspect]
     Indication: HIV INFECTION
     Route: 048
     Dates: start: 20130516
  6. PREZISTA [Suspect]
     Indication: HIV INFECTION
     Route: 048
     Dates: start: 20130516
  7. BACTRIM [Suspect]
     Indication: INFECTION PROPHYLAXIS
     Dosage: 800 MG / 160 MG AS 1/2 PER DAY
     Route: 048
     Dates: start: 20130517
  8. LOVENOX [Concomitant]
     Indication: PRODUCT USED FOR UNKNOWN INDICATION
     Dates: start: 20130504, end: 20130517
  9. LYRICA [Concomitant]
     Indication: EPILEPSY
     Dates: start: 20130506, end: 20130517

REACTIONS (5)
  - Mixed liver injury [Recovering/Resolving]
  - Pancreatitis acute [Unknown]
  - Cholelithiasis [Unknown]
  - Abdominal pain upper [Unknown]
  - Hyperlipasaemia [Unknown]
